FAERS Safety Report 19062176 (Version 2)
Quarter: 2021Q2

REPORT INFORMATION
  Report Type: Report from Study
  Country: IL (occurrence: IL)
  Receive Date: 20210326
  Receipt Date: 20210409
  Transmission Date: 20210717
  Serious: Yes (Hospitalization, Other)
  Sender: FDA-Public Use
  Company Number: IL-IPSEN BIOPHARMACEUTICALS, INC.-2020-08755

PATIENT
  Age: 84 Year
  Sex: Female
  Weight: 45 kg

DRUGS (18)
  1. SOMATULINE AUTOGEL [Suspect]
     Active Substance: LANREOTIDE ACETATE
     Indication: NEUROENDOCRINE TUMOUR
     Dosage: 150 MG (90 MG + 60 MG) EVERY 28 DAYS
     Route: 058
     Dates: start: 20130522
  2. ELIQUIS [Concomitant]
     Active Substance: APIXABAN
     Route: 048
     Dates: start: 202103
  3. CALCIUM CARBONATE VITAMIN D3 [Concomitant]
     Dosage: TAB 0 CF RECOMMENDED TO TAKE SEPARATELY FROM DAIRY PRODUCTS AND DURING EVENING HOUR
     Route: 048
  4. TRAJENTA [Concomitant]
     Active Substance: LINAGLIPTIN
     Indication: DIABETES MELLITUS
     Route: 048
  5. GENTLE IRON [Concomitant]
     Route: 048
  6. HYDROXYETHYLCELLULOSE COMP.COL 0 CF TO THE EYE [Concomitant]
     Dosage: 1 DROP
  7. RAMIPRIL HYDROCHLORTHIAZIDE [Concomitant]
     Dosage: 5 MG/25 MG
     Route: 048
  8. GLUCOPHAGE [Concomitant]
     Active Substance: METFORMIN HYDROCHLORIDE
     Dosage: TO BE TAKEN WITH OR IMMEDIATELY AFTER FOOD
     Route: 048
  9. INS TOUJEO PEN [Concomitant]
     Route: 058
  10. TRITACE [Concomitant]
     Active Substance: RAMIPRIL
     Route: 048
  11. COUMADIN [Concomitant]
     Active Substance: WARFARIN SODIUM
     Route: 048
  12. ELIQUIS [Concomitant]
     Active Substance: APIXABAN
     Indication: ATRIAL FIBRILLATION
     Dates: end: 202103
  13. AMARYL [Concomitant]
     Active Substance: GLIMEPIRIDE
     Route: 048
  14. AMIODARONE HCL [Concomitant]
     Active Substance: AMIODARONE HYDROCHLORIDE
     Route: 048
  15. INS LANTUS CRT [Concomitant]
     Dosage: FIVE UNITS AT 18:00
     Route: 058
  16. AMLODIPINE [Concomitant]
     Active Substance: AMLODIPINE BESYLATE
     Route: 048
  17. PROLIA [Suspect]
     Active Substance: DENOSUMAB
     Indication: PRODUCT USED FOR UNKNOWN INDICATION
     Route: 065
     Dates: start: 20181216
  18. LITORVA [Concomitant]
     Active Substance: ATORVASTATIN CALCIUM
     Route: 048

REACTIONS (13)
  - Subdural haemorrhage [Not Recovered/Not Resolved]
  - Fall [Not Recovered/Not Resolved]
  - Humerus fracture [Recovering/Resolving]
  - Hyperkalaemia [Unknown]
  - Urinary incontinence [Unknown]
  - Fall [Recovering/Resolving]
  - Thrombocytopenia [Unknown]
  - Aphasia [Unknown]
  - Anal incontinence [Unknown]
  - Off label use [Unknown]
  - Diabetes mellitus inadequate control [Unknown]
  - Circulatory collapse [Not Recovered/Not Resolved]
  - Cerebrovascular accident [Not Recovered/Not Resolved]

NARRATIVE: CASE EVENT DATE: 20130522
